FAERS Safety Report 16950680 (Version 2)
Quarter: 2020Q1

REPORT INFORMATION
  Report Type: Spontaneous
  Country: NL (occurrence: NL)
  Receive Date: 20191023
  Receipt Date: 20200103
  Transmission Date: 20200409
  Serious: Yes (Death)
  Sender: FDA-Public Use
  Company Number: NL-TEVA-2019-NL-1125899

PATIENT
  Age: 55 Year
  Sex: Male
  Weight: 80 kg

DRUGS (7)
  1. MIRTAZAPINE TABLET, 15 MG (MILLIGRAM) [Suspect]
     Active Substance: MIRTAZAPINE
     Indication: DEPRESSION
     Dosage: 1DD0,5T
     Dates: start: 20190930
  2. PARACETAMOL TABLETTEN [Concomitant]
  3. OCULOTECT OOGDRUPPELS [Concomitant]
  4. DICLOFENAC TABLETTEN [Concomitant]
  5. CBD-OLIE [Concomitant]
  6. MAGNESIUMTABLETTEN [Concomitant]
  7. ZILVERWATER [Concomitant]

REACTIONS (1)
  - Completed suicide [Fatal]

NARRATIVE: CASE EVENT DATE: 20191002
